FAERS Safety Report 4560356-6 (Version None)
Quarter: 2005Q1

REPORT INFORMATION
  Report Type: 
  Country: None (occurrence: None)
  Receive Date: 20050125
  Receipt Date: 20050112
  Transmission Date: 20050727
  Serious: Yes (Other)
  Sender: FDA-Public Use
  Company Number: US-AMGEN-US107245

PATIENT
  Age: 75 Year
  Sex: Female

DRUGS (3)
  1. NEUPOGEN [Suspect]
     Indication: MYELODYSPLASTIC SYNDROME
     Dates: start: 20020801
  2. IDARUBICIN HCL [Concomitant]
     Dates: start: 20020801
  3. CYTOSAR-U [Concomitant]
     Dates: start: 20020801

REACTIONS (6)
  - BIOPSY BONE MARROW ABNORMAL [None]
  - LEUKAEMOID REACTION [None]
  - LYMPHOCYTE PERCENTAGE DECREASED [None]
  - MONOCYTOSIS [None]
  - NEUTROPHIL PERCENTAGE DECREASED [None]
  - WHITE BLOOD CELL COUNT INCREASED [None]
